FAERS Safety Report 7869717-0 (Version None)
Quarter: 2011Q4

REPORT INFORMATION
  Report Type: 
  Country: None (occurrence: None)
  Receive Date: 20111027
  Receipt Date: 20111019
  Transmission Date: 20120403
  Serious: Yes (Death)
  Sender: FDA-Public Use
  Company Number: 20110722

PATIENT
  Age: 58 Year
  Sex: Male
  Weight: 79 kg

DRUGS (2)
  1. EPINEPHRINE [Suspect]
     Indication: RESUSCITATION
     Dosage: 32 MG/500 ML NORMAL SALINE, INTRAVENOUS DRIP
     Route: 041
     Dates: start: 20111017, end: 20111017
  2. EPINEPHRINE [Suspect]
     Indication: RESUSCITATION
     Dosage: 4 MG /250 ML NORMAL SALINE, INTRAVENOUS DRIP
     Route: 041
     Dates: start: 20111017, end: 20111017

REACTIONS (2)
  - THERAPEUTIC PRODUCT INEFFECTIVE [None]
  - PRODUCT SUBSTITUTION ISSUE [None]
